FAERS Safety Report 4946305-7 (Version None)
Quarter: 2006Q1

REPORT INFORMATION
  Report Type: 
  Country: None (occurrence: None)
  Receive Date: 20060316
  Receipt Date: 20060316
  Transmission Date: 20060701
  Serious: Yes (Other)
  Sender: FDA-Public Use
  Company Number: None

PATIENT
  Age: 36 Year
  Sex: Female
  Weight: 61.2356 kg

DRUGS (1)
  1. AMBIEN [Suspect]
     Indication: INSOMNIA
     Dosage: 10 MG Q HS PO
     Route: 048

REACTIONS (4)
  - AMNESIA [None]
  - BINGE EATING [None]
  - SLEEP WALKING [None]
  - THINKING ABNORMAL [None]
